FAERS Safety Report 13302591 (Version 1)
Quarter: 2017Q1

REPORT INFORMATION
  Report Type: Spontaneous
  Country: JP (occurrence: JP)
  Receive Date: 20170307
  Receipt Date: 20170307
  Transmission Date: 20170428
  Serious: Yes (Death)
  Sender: FDA-Public Use
  Company Number: JP-BIOCRYST PHARMACEUTICALS, INC.-2017BCR00070

PATIENT
  Age: 103 Year
  Sex: Male

DRUGS (1)
  1. RAPIACTA [Suspect]
     Active Substance: PERAMIVIR
     Indication: INFLUENZA
     Dosage: 300 MG, UNK
     Route: 042
     Dates: start: 20170218, end: 20170218

REACTIONS (1)
  - Death [Fatal]

NARRATIVE: CASE EVENT DATE: 20170219
